FAERS Safety Report 5105258-1 (Version None)
Quarter: 2006Q3

REPORT INFORMATION
  Report Type: 
  Country: None (occurrence: None)
  Receive Date: 20060911
  Receipt Date: 20060831
  Transmission Date: 20061208
  Serious: Yes (Hospitalization, Other)
  Sender: FDA-Public Use
  Company Number: HQWYE238301SEP06

PATIENT
  Age: 62 Year
  Sex: Male

DRUGS (9)
  1. RAPAMUNE [Suspect]
     Indication: PROPHYLAXIS AGAINST TRANSPLANT REJECTION
     Dosage: SEE IMAGE
     Route: 048
     Dates: start: 20060113, end: 20060812
  2. RAPAMUNE [Suspect]
     Indication: PROPHYLAXIS AGAINST TRANSPLANT REJECTION
     Dosage: SEE IMAGE
     Route: 048
     Dates: start: 20060812
  3. AMBIEN [Concomitant]
  4. NORVASC [Concomitant]
  5. VICODIN [Concomitant]
  6. COLACE (DOCUSATE SODIUM) [Concomitant]
  7. CELEXA [Concomitant]
  8. PRILOSEC [Concomitant]
  9. ZOCOR [Concomitant]

REACTIONS (12)
  - ABDOMINAL ABSCESS [None]
  - BLOOD CULTURE POSITIVE [None]
  - CHOLANGITIS [None]
  - COMPLICATIONS OF TRANSPLANTED LIVER [None]
  - ESCHERICHIA INFECTION [None]
  - HEPATIC ARTERY STENOSIS [None]
  - INFECTION IN AN IMMUNOCOMPROMISED HOST [None]
  - NEPHROLITHIASIS [None]
  - POST PROCEDURAL BILE LEAK [None]
  - POST PROCEDURAL COMPLICATION [None]
  - POSTOPERATIVE INFECTION [None]
  - SEROMA [None]
